FAERS Safety Report 4563874-X (Version None)
Quarter: 2005Q1

REPORT INFORMATION
  Report Type: 
  Country: None (occurrence: None)
  Receive Date: 20050128
  Receipt Date: 20050126
  Transmission Date: 20050727
  Serious: Yes (Death, Hospitalization, Other)
  Sender: FDA-Public Use
  Company Number: PHBS2005BE01434

PATIENT
  Age: 34 Year
  Sex: Male

DRUGS (12)
  1. CYCLOSPORINE [Suspect]
     Indication: BONE MARROW TRANSPLANT
  2. FLUDARABINE [Concomitant]
  3. MELPHALAN [Concomitant]
  4. ANTITHYMOCYTE IMMUNOGLOBULIN [Concomitant]
  5. MYCOPHENOLATE MOFETIL [Concomitant]
     Indication: GRAFT VERSUS HOST DISEASE
     Dosage: 500 MG, QID
  6. MYCOPHENOLATE MOFETIL [Concomitant]
     Dosage: 1.5 G, QD
  7. MYCOPHENOLATE MOFETIL [Concomitant]
     Dosage: 1-1.5 MG/D
  8. METHYLPREDNISOLONE [Concomitant]
     Indication: GRAFT VERSUS HOST DISEASE
     Dosage: 1 MG/KG/D
  9. METHYLPREDNISOLONE [Concomitant]
     Dosage: 2 MG/KG/D
  10. METHYLPREDNISOLONE [Concomitant]
     Dosage: 0.3 MG/KG/D
  11. METHYLPREDNISOLONE [Concomitant]
     Dosage: 12 MG/D
  12. IRRADIATION [Concomitant]

REACTIONS (12)
  - ADENOVIRUS INFECTION [None]
  - BK VIRUS INFECTION [None]
  - BLOOD CREATININE INCREASED [None]
  - CYSTITIS HAEMORRHAGIC [None]
  - ENCEPHALOPATHY [None]
  - GRAFT VERSUS HOST DISEASE [None]
  - HAEMATURIA [None]
  - KLEBSIELLA SEPSIS [None]
  - MULTI-ORGAN FAILURE [None]
  - PULMONARY ALVEOLAR HAEMORRHAGE [None]
  - RENAL FAILURE ACUTE [None]
  - RESPIRATORY DISTRESS [None]
